FAERS Safety Report 18204028 (Version 1)
Quarter: 2020Q3

REPORT INFORMATION
  Report Type: Spontaneous
  Country: US (occurrence: US)
  Receive Date: 20200827
  Receipt Date: 20200827
  Transmission Date: 20201103
  Serious: No
  Sender: FDA-Public Use
  Company Number: US-CADILA HEALTHCARE LIMITED-US-ZYDUS-054117

PATIENT

DRUGS (1)
  1. DEXTROAMPHET SACCHARAT, AMPHET ASPARTATE, DEXTROAMPHET SULFATE AND AMPHET SULFAT [Suspect]
     Active Substance: AMPHETAMINE ASPARTATE\AMPHETAMINE SULFATE\DEXTROAMPHETAMINE SACCHARATE\DEXTROAMPHETAMINE SULFATE
     Indication: PRODUCT USED FOR UNKNOWN INDICATION
     Dosage: 20 MILLIGRAM, BID
     Route: 065

REACTIONS (11)
  - Feeling abnormal [Unknown]
  - Disturbance in attention [Unknown]
  - Rhinorrhoea [Unknown]
  - Drug ineffective [Unknown]
  - Somnolence [Unknown]
  - Peripheral swelling [Unknown]
  - Pain [Unknown]
  - Fatigue [Unknown]
  - Paraesthesia [Unknown]
  - Cough [Unknown]
  - Hypoaesthesia [Unknown]
